FAERS Safety Report 7506310-3 (Version None)
Quarter: 2011Q2

REPORT INFORMATION
  Report Type: 
  Country: None (occurrence: None)
  Receive Date: 20110526
  Receipt Date: 20101026
  Transmission Date: 20111010
  Serious: No
  Sender: FDA-Public Use
  Company Number: US-ABBOTT-10P-163-0681500-00

PATIENT
  Sex: Female
  Weight: 100.33 kg

DRUGS (7)
  1. VITAMIN D [Concomitant]
     Indication: PRODUCT USED FOR UNKNOWN INDICATION
     Route: 048
  2. ZEMPLAR [Suspect]
     Indication: RENAL FAILURE
     Dosage: ONE DOSE DURING DIALYSIS
     Dates: start: 20101022, end: 20101022
  3. ZEMPLAR [Suspect]
     Indication: HYPERPARATHYROIDISM
  4. MECLIZINE [Concomitant]
     Indication: DIZZINESS
     Route: 048
  5. ZEMPLAR [Suspect]
     Indication: HYPERPARATHYROIDISM
     Route: 048
     Dates: start: 20100801, end: 20100813
  6. ZEMPLAR [Suspect]
     Indication: RENAL FAILURE
     Route: 048
     Dates: start: 20100701, end: 20100701
  7. NORVASC [Concomitant]
     Indication: HYPERTENSION
     Route: 048

REACTIONS (5)
  - EYE PAIN [None]
  - VISUAL IMPAIRMENT [None]
  - PHOTOPSIA [None]
  - ABNORMAL SENSATION IN EYE [None]
  - VISION BLURRED [None]
